FAERS Safety Report 13644077 (Version 1)
Quarter: 2017Q2

REPORT INFORMATION
  Report Type: Spontaneous
  Country: CH (occurrence: CH)
  Receive Date: 20170612
  Receipt Date: 20170612
  Transmission Date: 20170830
  Serious: Yes (Hospitalization, Other)
  Sender: FDA-Public Use
  Company Number: CH-MEDA-2017060017

PATIENT
  Age: 84 Year
  Sex: Male

DRUGS (14)
  1. HEPARIN [Concomitant]
     Active Substance: HEPARIN SODIUM
     Dates: start: 20170523, end: 20170525
  2. ENALAPRIL [Suspect]
     Active Substance: ENALAPRIL
     Route: 048
     Dates: start: 20170505, end: 20170522
  3. CALCIMAGON-D3 [Concomitant]
     Active Substance: CALCIUM\CHOLECALCIFEROL
  4. HEPARIN [Concomitant]
     Active Substance: HEPARIN SODIUM
     Dates: start: 20170502, end: 20170504
  5. LORAZEPAM. [Suspect]
     Active Substance: LORAZEPAM
     Route: 048
     Dates: start: 20170522, end: 20170522
  6. BELOC ZOK [Concomitant]
     Active Substance: METOPROLOL SUCCINATE
     Dates: end: 20170522
  7. AUGMENTIN [Concomitant]
     Active Substance: AMOXICILLIN\CLAVULANATE POTASSIUM
     Dates: start: 20170522
  8. ARGATRA [Concomitant]
     Active Substance: ARGATROBAN
     Dates: start: 20170522, end: 20170522
  9. TOREM [Suspect]
     Active Substance: TORSEMIDE
     Route: 048
     Dates: start: 20170506, end: 20170514
  10. TOREM [Suspect]
     Active Substance: TORSEMIDE
     Route: 048
     Dates: start: 20170515, end: 20170522
  11. ASPIRIN CARDIO [Concomitant]
     Active Substance: ASPIRIN
     Dates: end: 20170522
  12. ACIDUM FOLICUM [Concomitant]
     Active Substance: FOLIC ACID
     Dates: start: 20170503
  13. ANEXATE [Concomitant]
     Active Substance: FLUMAZENIL
     Dates: start: 20170522, end: 20170522
  14. LASIX [Concomitant]
     Active Substance: FUROSEMIDE
     Dates: start: 20170501, end: 20170501

REACTIONS (3)
  - Depressed level of consciousness [Recovered/Resolved]
  - Cheyne-Stokes respiration [Recovered/Resolved]
  - Thrombocytopenia [Not Recovered/Not Resolved]

NARRATIVE: CASE EVENT DATE: 20170522
